FAERS Safety Report 21141452 (Version 5)
Quarter: 2022Q4

REPORT INFORMATION
  Report Type: Spontaneous
  Country: US (occurrence: US)
  Receive Date: 20220728
  Receipt Date: 20221215
  Transmission Date: 20230113
  Serious: No
  Sender: FDA-Public Use
  Company Number: US-EXELIXIS-CABO-22054326

PATIENT
  Age: 83 Year
  Sex: Male

DRUGS (9)
  1. OPDIVO [Suspect]
     Active Substance: NIVOLUMAB
     Indication: Renal cell carcinoma
     Dosage: RECEIVING ONLY HALF DOSE
     Route: 042
     Dates: end: 20220811
  2. CABOMETYX [Suspect]
     Active Substance: CABOZANTINIB S-MALATE
     Indication: Renal cell carcinoma
     Dosage: 40 MG, QD
     Dates: start: 20220629, end: 20220811
  3. CABOMETYX [Suspect]
     Active Substance: CABOZANTINIB S-MALATE
     Dosage: UNK, (RECEIVING ONLY HALF DOSE)
     Route: 042
  4. CRESTOR [Concomitant]
     Active Substance: ROSUVASTATIN CALCIUM
     Dosage: UNK
  5. CRESTOR [Concomitant]
     Active Substance: ROSUVASTATIN CALCIUM
     Indication: Product used for unknown indication
  6. VITAMIN D3 [Concomitant]
     Active Substance: CHOLECALCIFEROL
     Dosage: UNK
  7. VITAMIN D3 [Concomitant]
     Active Substance: CHOLECALCIFEROL
     Indication: Product used for unknown indication
     Dosage: UNK
  8. IBUPROFEN [Concomitant]
     Active Substance: IBUPROFEN
     Indication: Product used for unknown indication
  9. VITAMIN B12 [Concomitant]
     Active Substance: CYANOCOBALAMIN
     Indication: Product used for unknown indication

REACTIONS (14)
  - Tooth disorder [Unknown]
  - Dry throat [Unknown]
  - Muscle atrophy [Unknown]
  - Insomnia [Unknown]
  - Tongue discomfort [Unknown]
  - Thyroid hormones decreased [Unknown]
  - Fatigue [Unknown]
  - Dyspepsia [Unknown]
  - Blood pressure increased [Unknown]
  - Weight decreased [Unknown]
  - Muscle spasms [Recovered/Resolved]
  - Dry skin [Unknown]
  - Taste disorder [Unknown]
  - Dysphonia [Not Recovered/Not Resolved]

NARRATIVE: CASE EVENT DATE: 20220701
